FAERS Safety Report 4267253-4 (Version None)
Quarter: 2004Q1

REPORT INFORMATION
  Report Type: 
  Country: None (occurrence: None)
  Receive Date: 20040107
  Receipt Date: 20031224
  Transmission Date: 20041129
  Serious: Yes (Hospitalization)
  Sender: FDA-Public Use
  Company Number: BE-JNJFOC-20031201874

PATIENT
  Age: 65 Year
  Sex: Female
  Weight: 82 kg

DRUGS (7)
  1. TOPAMAX [Suspect]
     Indication: EPILEPSY
     Dosage: SEE IMAGE
     Dates: start: 20030813, end: 20031022
  2. TOPAMAX [Suspect]
     Indication: EPILEPSY
     Dosage: SEE IMAGE
     Dates: start: 20030508
  3. TOPAMAX [Suspect]
     Indication: EPILEPSY
     Dosage: SEE IMAGE
     Dates: start: 20031022
  4. DIFANTOINE (PHENYTOIN SODIUM) [Suspect]
     Indication: POISONING
     Dosage: 200 MG, 2 IN 1 DAY
     Dates: start: 20020911, end: 20030707
  5. TEGRETOL [Concomitant]
  6. KEPPRA [Concomitant]
  7. SEROQUEL [Concomitant]

REACTIONS (7)
  - ATAXIA [None]
  - CONVULSION [None]
  - DRUG TOXICITY [None]
  - FALL [None]
  - HYPOTONIA [None]
  - LOSS OF CONSCIOUSNESS [None]
  - SOMNOLENCE [None]
